FAERS Safety Report 11077371 (Version 1)
Quarter: 2015Q2

REPORT INFORMATION
  Report Type: Spontaneous
  Country: US (occurrence: US)
  Receive Date: 20150430
  Receipt Date: 20150430
  Transmission Date: 20150821
  Serious: Yes (Hospitalization)
  Sender: FDA-Public Use
  Company Number: US-BRISTOL-MYERS SQUIBB COMPANY-BMS-2015-025958

PATIENT
  Sex: Female
  Weight: 48.53 kg

DRUGS (2)
  1. APRISO [Concomitant]
     Active Substance: MESALAMINE
     Indication: PRODUCT USED FOR UNKNOWN INDICATION
     Dosage: 0.375 MG, UNK
     Route: 065
  2. ELIQUIS [Suspect]
     Active Substance: APIXABAN
     Indication: CEREBROVASCULAR ACCIDENT PROPHYLAXIS
     Dosage: 2.5 MG, BID
     Route: 065
     Dates: start: 201504

REACTIONS (4)
  - Rash [Unknown]
  - Skin fragility [Unknown]
  - Skin discolouration [Unknown]
  - Diarrhoea [Unknown]
